FAERS Safety Report 20500545 (Version 1)
Quarter: 2022Q1

REPORT INFORMATION
  Report Type: Spontaneous
  Country: US (occurrence: US)
  Receive Date: 20220222
  Receipt Date: 20220222
  Transmission Date: 20220423
  Serious: No
  Sender: FDA-Public Use
  Company Number: US-SA-SAC20220217000396

PATIENT
  Sex: Female

DRUGS (1)
  1. DUPIXENT [Suspect]
     Active Substance: DUPILUMAB
     Indication: Nasal polyps
     Dosage: 300MG
     Route: 058

REACTIONS (7)
  - Anxiety [Unknown]
  - Restlessness [Unknown]
  - Increased appetite [Unknown]
  - Dehydration [Unknown]
  - Rash [Unknown]
  - Unevaluable event [Unknown]
  - Product use in unapproved indication [Unknown]
